FAERS Safety Report 6021629-3 (Version None)
Quarter: 2008Q4

REPORT INFORMATION
  Report Type: 
  Country: None (occurrence: None)
  Receive Date: 20081229
  Receipt Date: 20081222
  Transmission Date: 20090506
  Serious: Yes (Hospitalization)
  Sender: FDA-Public Use
  Company Number: DE-ABBOTT-08P-062-0494059-00

PATIENT
  Sex: Male

DRUGS (7)
  1. HUMIRA [Suspect]
     Indication: RHEUMATOID ARTHRITIS
     Dates: start: 20060101
  2. HUMIRA [Suspect]
     Indication: PSORIATIC ARTHROPATHY
  3. LYRICA [Concomitant]
     Indication: RHEUMATOID ARTHRITIS
  4. LYRICA [Concomitant]
     Indication: PSORIATIC ARTHROPATHY
  5. ARTHROTEX [Concomitant]
     Indication: RHEUMATOID ARTHRITIS
  6. ARTHROTEX [Concomitant]
     Indication: PSORIATIC ARTHROPATHY
  7. FOSINORM [Concomitant]
     Indication: DRUG USE FOR UNKNOWN INDICATION

REACTIONS (1)
  - DEFORMITY THORAX [None]
